FAERS Safety Report 17179565 (Version 5)
Quarter: 2020Q1

REPORT INFORMATION
  Report Type: Report from Study
  Country: BE (occurrence: BE)
  Receive Date: 20191220
  Receipt Date: 20200216
  Transmission Date: 20200409
  Serious: Yes (Other)
  Sender: FDA-Public Use
  Company Number: BE-BEH-2019110856

PATIENT
  Age: 5 Year
  Sex: Female
  Weight: 11.8 kg

DRUGS (3)
  1. HIZENTRA [Suspect]
     Active Substance: HUMAN IMMUNOGLOBULIN G
     Dosage: 2 GRAM/10 ML, QOW
     Route: 065
     Dates: start: 2019
  2. HIZENTRA [Suspect]
     Active Substance: HUMAN IMMUNOGLOBULIN G
     Indication: PRIMARY IMMUNODEFICIENCY SYNDROME
     Dosage: 2 GRAM/10 ML, QW
     Route: 065
     Dates: start: 20180312
  3. HIZENTRA [Suspect]
     Active Substance: HUMAN IMMUNOGLOBULIN G
     Indication: HYPOGAMMAGLOBULINAEMIA
     Dosage: 2 GRAM, TOT
     Route: 065
     Dates: start: 20180312

REACTIONS (2)
  - Respiratory tract infection [Recovered/Resolved]
  - Intentional product misuse [Recovered/Resolved]

NARRATIVE: CASE EVENT DATE: 201910
